FAERS Safety Report 19945686 (Version 1)
Quarter: 2021Q4

REPORT INFORMATION
  Report Type: Spontaneous
  Country: US (occurrence: US)
  Receive Date: 20211012
  Receipt Date: 20211012
  Transmission Date: 20220304
  Serious: No
  Sender: FDA-Public Use
  Company Number: US-PFIZER INC-2021581296

PATIENT
  Age: 59 Year
  Sex: Male
  Weight: 117.93 kg

DRUGS (3)
  1. ZOLOFT [Suspect]
     Active Substance: SERTRALINE HYDROCHLORIDE
     Indication: Depression
     Dosage: 200 MG
  2. ZOLOFT [Suspect]
     Active Substance: SERTRALINE HYDROCHLORIDE
     Dosage: 150 MG, DAILY
  3. SEROQUEL [Concomitant]
     Active Substance: QUETIAPINE FUMARATE
     Indication: Depression
     Dosage: 50 MG

REACTIONS (15)
  - Drug ineffective [Not Recovered/Not Resolved]
  - Muscle rigidity [Unknown]
  - Nervous system injury [Unknown]
  - Abdominal discomfort [Unknown]
  - Neck pain [Unknown]
  - Pain in extremity [Unknown]
  - Myalgia [Unknown]
  - Tendon pain [Unknown]
  - Nervousness [Unknown]
  - Headache [Unknown]
  - Anger [Unknown]
  - Poor quality sleep [Not Recovered/Not Resolved]
  - Hyperhidrosis [Not Recovered/Not Resolved]
  - Libido decreased [Not Recovered/Not Resolved]
  - Paraesthesia [Unknown]

NARRATIVE: CASE EVENT DATE: 20210401
